FAERS Safety Report 4884730-3 (Version None)
Quarter: 2006Q1

REPORT INFORMATION
  Report Type: 
  Country: None (occurrence: None)
  Receive Date: 20060119
  Receipt Date: 20060109
  Transmission Date: 20060701
  Serious: Yes (Hospitalization)
  Sender: FDA-Public Use
  Company Number: FR-BRISTOL-MYERS SQUIBB COMPANY-13241617

PATIENT
  Age: 42 Year
  Sex: Female

DRUGS (2)
  1. ABILIFY [Suspect]
     Route: 048
     Dates: start: 20050815, end: 20051213
  2. LEPTICUR [Suspect]
     Route: 048
     Dates: end: 20051213

REACTIONS (6)
  - ANXIETY [None]
  - CONFUSIONAL STATE [None]
  - HALLUCINATION, AUDITORY [None]
  - HALLUCINATION, VISUAL [None]
  - OVERDOSE [None]
  - SUICIDE ATTEMPT [None]
